FAERS Safety Report 12606127 (Version 1)
Quarter: 2016Q3

REPORT INFORMATION
  Report Type: Spontaneous
  Country: US (occurrence: None)
  Receive Date: 20160728
  Receipt Date: 20160728
  Transmission Date: 20161109
  Serious: Yes (Hospitalization)
  Sender: FDA-Public Use
  Company Number: None

PATIENT
  Age: 64 Year
  Sex: Male
  Weight: 94.4 kg

DRUGS (1)
  1. LEDIPASVIR/SOFOSBUVIR [Suspect]
     Active Substance: LEDIPASVIR\SOFOSBUVIR
     Indication: HEPATITIS C
     Dosage: 90-400 MG EVERY DAY PO
     Route: 048
     Dates: start: 20160708, end: 20160727

REACTIONS (7)
  - Cardiac failure congestive [None]
  - Atrial fibrillation [None]
  - Palpitations [None]
  - Oedema peripheral [None]
  - Dyspnoea at rest [None]
  - Vision blurred [None]
  - Respiratory depression [None]

NARRATIVE: CASE EVENT DATE: 20160726
